FAERS Safety Report 25858789 (Version 1)
Quarter: 2025Q3

REPORT INFORMATION
  Report Type: Spontaneous
  Country: US (occurrence: None)
  Receive Date: 20250926
  Receipt Date: 20250926
  Transmission Date: 20251021
  Serious: Yes (Hospitalization)
  Sender: FDA-CTU
  Company Number: None

PATIENT
  Age: 37 Year
  Sex: Male

DRUGS (1)
  1. MAVYRET [Suspect]
     Active Substance: GLECAPREVIR\PIBRENTASVIR
     Dosage: OTHER QUANTITY : 400/100 MG;?FREQUENCY : DAILY;?

REACTIONS (4)
  - Abdominal distension [None]
  - Peripheral swelling [None]
  - Peripheral swelling [None]
  - Yellow skin [None]
